FAERS Safety Report 20474367 (Version 3)
Quarter: 2022Q1

REPORT INFORMATION
  Report Type: Spontaneous
  Country: JP (occurrence: JP)
  Receive Date: 20220215
  Receipt Date: 20220325
  Transmission Date: 20220424
  Serious: No
  Sender: FDA-Public Use
  Company Number: JP-GLAXOSMITHKLINE-JP2022JPN021584

PATIENT
  Age: 80 Year
  Sex: Male

DRUGS (3)
  1. SOTROVIMAB [Suspect]
     Active Substance: SOTROVIMAB
     Indication: COVID-19
     Dosage: 500 MG/100 ML/30 MIN, QD
     Dates: start: 20220202, end: 20220202
  2. OXYGEN [Concomitant]
     Active Substance: OXYGEN
     Dosage: 1 L
     Dates: start: 20220202
  3. OXYGEN [Concomitant]
     Active Substance: OXYGEN
     Dosage: 1.5 L
     Dates: start: 20220205

REACTIONS (2)
  - Diarrhoea [Recovered/Resolved]
  - Infusion related reaction [Recovered/Resolved]

NARRATIVE: CASE EVENT DATE: 20220201
